FAERS Safety Report 6149243-X (Version None)
Quarter: 2009Q2

REPORT INFORMATION
  Report Type: 
  Country: None (occurrence: None)
  Receive Date: 20090409
  Receipt Date: 20090330
  Transmission Date: 20091009
  Serious: Yes (Hospitalization)
  Sender: FDA-Public Use
  Company Number: US-CELGENEUS-163-21880-09020930

PATIENT
  Age: 61 Year
  Sex: Female

DRUGS (8)
  1. REVLIMID [Suspect]
     Route: 048
     Dates: start: 20081212
  2. CLARITIN [Concomitant]
     Indication: SINUS CONGESTION
     Route: 065
  3. PSEUDOEPHEDRINE HCL [Concomitant]
     Indication: SINUS CONGESTION
     Route: 065
  4. TESSALON PERLS [Concomitant]
     Indication: SINUS CONGESTION
     Route: 065
  5. ADVAIR HFA [Concomitant]
     Indication: ASTHMA
     Route: 055
  6. ALBUTEROL [Concomitant]
     Indication: ASTHMA
     Route: 055
  7. SINGULAIR [Concomitant]
     Indication: ASTHMA
     Route: 065
  8. BLOOD PRODUCTS [Concomitant]
     Indication: DRUG USE FOR UNKNOWN INDICATION
     Route: 051

REACTIONS (7)
  - ASTHMA [None]
  - BRONCHITIS [None]
  - COUGH [None]
  - GASTROENTERITIS VIRAL [None]
  - HYPOXIA [None]
  - OROPHARYNGEAL PAIN [None]
  - PYREXIA [None]
